FAERS Safety Report 5065261-7 (Version None)
Quarter: 2006Q3

REPORT INFORMATION
  Report Type: 
  Country: None (occurrence: None)
  Receive Date: 20060707
  Receipt Date: 20050526
  Transmission Date: 20061208
  Serious: Yes (Hospitalization)
  Sender: FDA-Public Use
  Company Number: SUS1-2005-00453

PATIENT
  Sex: Female

DRUGS (1)
  1. PENTASA [Suspect]
     Indication: COLITIS ULCERATIVE
     Dosage: 4G DAILY, ORAL
     Route: 048
     Dates: start: 20050101, end: 20050101

REACTIONS (2)
  - ABDOMINAL PAIN [None]
  - DIARRHOEA [None]
